FAERS Safety Report 25049950 (Version 1)
Quarter: 2025Q1

REPORT INFORMATION
  Report Type: Spontaneous
  Country: US (occurrence: US)
  Receive Date: 20250307
  Receipt Date: 20250307
  Transmission Date: 20250409
  Serious: No
  Sender: UNITED THERAPEUTICS
  Company Number: US-UNITED THERAPEUTICS-UNT-2025-004061

PATIENT
  Age: 54 Year
  Sex: Female

DRUGS (4)
  1. ORENITRAM [Suspect]
     Active Substance: TREPROSTINIL
     Indication: Pulmonary arterial hypertension
     Dosage: 0.25 MG, TID
  2. ORENITRAM [Suspect]
     Active Substance: TREPROSTINIL
     Dosage: 0.625 MG, TID
  3. ORENITRAM [Suspect]
     Active Substance: TREPROSTINIL
  4. TYLENOL [Suspect]
     Active Substance: ACETAMINOPHEN
     Indication: Headache

REACTIONS (3)
  - Headache [Not Recovered/Not Resolved]
  - Product dose omission issue [Recovered/Resolved]
  - Therapy partial responder [Unknown]

NARRATIVE: CASE EVENT DATE: 20250128
